FAERS Safety Report 8373603-X (Version None)
Quarter: 2012Q2

REPORT INFORMATION
  Report Type: 
  Country: None (occurrence: None)
  Receive Date: 20120521
  Receipt Date: 20110913
  Transmission Date: 20120825
  Serious: No
  Sender: FDA-Public Use
  Company Number: US-TEVA-2011004853

PATIENT
  Age: 50 Year
  Sex: Male

DRUGS (2)
  1. TREANDA [Suspect]
     Indication: LYMPHOMA
     Route: 042
     Dates: start: 20110601
  2. RITUXAN [Concomitant]

REACTIONS (3)
  - GAIT DISTURBANCE [None]
  - PAIN IN EXTREMITY [None]
  - ERYTHEMA [None]
